FAERS Safety Report 5396558-9 (Version None)
Quarter: 2007Q3

REPORT INFORMATION
  Report Type: 
  Country: None (occurrence: None)
  Receive Date: 20070725
  Receipt Date: 20070716
  Transmission Date: 20080115
  Serious: Yes (Other)
  Sender: FDA-Public Use
  Company Number: FR-ASTRAZENECA-2007CG01074

PATIENT
  Age: 30 Year
  Sex: Female

DRUGS (3)
  1. RHINOCORT [Suspect]
     Indication: RHINITIS ALLERGIC
     Route: 045
     Dates: start: 20070707, end: 20070708
  2. RHINOCORT [Suspect]
     Indication: NASAL CONGESTION
     Route: 045
     Dates: start: 20070707, end: 20070708
  3. CETIRIZINE HCL [Concomitant]
     Indication: SEASONAL ALLERGY
     Route: 048
     Dates: start: 20070401

REACTIONS (3)
  - DERMATITIS ALLERGIC [None]
  - ERYTHEMA [None]
  - FACE OEDEMA [None]
